FAERS Safety Report 6849202-5 (Version None)
Quarter: 2010Q3

REPORT INFORMATION
  Report Type: 
  Country: None (occurrence: None)
  Receive Date: 20100716
  Receipt Date: 20071002
  Transmission Date: 20110219
  Serious: No
  Sender: FDA-Public Use
  Company Number: US-PFIZER INC-2007082213

PATIENT
  Sex: Female
  Weight: 44.5 kg

DRUGS (3)
  1. CHANTIX [Suspect]
     Indication: SMOKING CESSATION THERAPY
     Dates: start: 20070922, end: 20071001
  2. PRILOSEC [Concomitant]
     Indication: GASTRIC DISORDER
  3. XANAX [Concomitant]
     Indication: PAIN

REACTIONS (2)
  - ABDOMINAL PAIN UPPER [None]
  - NAUSEA [None]
